FAERS Safety Report 9380825 (Version 4)
Quarter: 2013Q4

REPORT INFORMATION
  Report Type: Spontaneous
  Country: US (occurrence: US)
  Receive Date: 20130702
  Receipt Date: 20131112
  Transmission Date: 20140711
  Serious: Yes (Hospitalization, Other)
  Sender: FDA-Public Use
  Company Number: US-TEVA-415991USA

PATIENT
  Age: 71 Year
  Sex: Male

DRUGS (3)
  1. PROAIR HFA [Suspect]
     Route: 055
     Dates: start: 2012
  2. NORCO [Concomitant]
  3. XANAX [Concomitant]

REACTIONS (2)
  - Renal mass [Recovered/Resolved]
  - Haematuria [Not Recovered/Not Resolved]
